FAERS Safety Report 10391174 (Version 1)
Quarter: 2014Q3

REPORT INFORMATION
  Report Type: Report from Study
  Country: BR (occurrence: BR)
  Receive Date: 20140818
  Receipt Date: 20140818
  Transmission Date: 20150326
  Serious: Yes (Hospitalization)
  Sender: FDA-Public Use
  Company Number: BR-SA-2014SA107110

PATIENT
  Age: 72 Year
  Sex: Female

DRUGS (16)
  1. MORPHINE [Concomitant]
     Active Substance: MORPHINE
     Dates: start: 20140603
  2. ONDANSETRON [Concomitant]
     Active Substance: ONDANSETRON
     Dates: start: 20140610
  3. LOSARTAN POTASSIUM. [Concomitant]
     Active Substance: LOSARTAN POTASSIUM
     Dates: start: 198212
  4. FENTANYL CITRATE. [Concomitant]
     Active Substance: FENTANYL CITRATE
     Route: 062
     Dates: start: 20140702
  5. DOCETAXEL [Suspect]
     Active Substance: DOCETAXEL
     Indication: BREAST CANCER
     Route: 065
  6. PERTUZUMAB [Suspect]
     Active Substance: PERTUZUMAB
     Indication: BREAST CANCER
     Route: 065
  7. DIPYRONE [Concomitant]
     Active Substance: DIPYRONE
     Dates: start: 20140604
  8. MIRTAZAPINE. [Concomitant]
     Active Substance: MIRTAZAPINE
     Dates: start: 20140610
  9. TRASTUZUMAB [Suspect]
     Active Substance: TRASTUZUMAB
     Indication: BREAST CANCER
     Route: 065
  10. ATORVASTATIN [Concomitant]
     Active Substance: ATORVASTATIN
     Dates: start: 1982
  11. SUCRALFATE. [Concomitant]
     Active Substance: SUCRALFATE
     Dates: start: 20140710
  12. NYSTATIN. [Concomitant]
     Active Substance: NYSTATIN
     Dates: start: 20140710
  13. CETRIMIDE [Concomitant]
     Active Substance: CETRIMIDE\LIDOCAINE
     Dates: start: 20140712
  14. LIPLESS [Concomitant]
     Active Substance: CIPROFIBRATE
     Dates: start: 201401
  15. FENTANYL CITRATE. [Concomitant]
     Active Substance: FENTANYL CITRATE
     Route: 062
     Dates: start: 20140610, end: 20140701
  16. AMPHOTERICIN B/TETRACYCLINE [Concomitant]
     Dates: start: 20140710, end: 20140716

REACTIONS (1)
  - Cystitis haemorrhagic [Not Recovered/Not Resolved]

NARRATIVE: CASE EVENT DATE: 20140730
